FAERS Safety Report 4489159-8 (Version None)
Quarter: 2004Q4

REPORT INFORMATION
  Report Type: 
  Country: None (occurrence: None)
  Receive Date: 20041028
  Receipt Date: 20041021
  Transmission Date: 20050328
  Serious: Yes (Death, Other)
  Sender: FDA-Public Use
  Company Number: 04-10-1488

PATIENT
  Age: 51 Year
  Sex: Female

DRUGS (1)
  1. CLOZAPINE [Suspect]
     Indication: SCHIZOPHRENIA, RESIDUAL TYPE
     Dosage: ORAL
     Route: 048
     Dates: start: 20040801, end: 20040901

REACTIONS (3)
  - BRONCHITIS ACUTE [None]
  - COMA [None]
  - RESUSCITATION [None]
